FAERS Safety Report 18438830 (Version 1)
Quarter: 2020Q4

REPORT INFORMATION
  Report Type: Other
  Country: CA (occurrence: CA)
  Receive Date: 20201028
  Receipt Date: 20201028
  Transmission Date: 20210114
  Serious: Yes (Other)
  Sender: FDA-Public Use
  Company Number: CA-MAYNE PHARMA-2020MYN000534

PATIENT

DRUGS (13)
  1. SYMBICORT [Concomitant]
     Active Substance: BUDESONIDE\FORMOTEROL FUMARATE DIHYDRATE
     Indication: PRODUCT USED FOR UNKNOWN INDICATION
  2. ERYTHROMYCIN. [Suspect]
     Active Substance: ERYTHROMYCIN
     Indication: PRODUCT USED FOR UNKNOWN INDICATION
     Route: 065
  3. AMOXICILLIN. [Suspect]
     Active Substance: AMOXICILLIN
     Indication: PRODUCT USED FOR UNKNOWN INDICATION
     Route: 065
  4. MACRODANTIN [Suspect]
     Active Substance: NITROFURANTOIN
     Indication: PRODUCT USED FOR UNKNOWN INDICATION
     Route: 065
  5. KEFLEX [Suspect]
     Active Substance: CEPHALEXIN
     Indication: PRODUCT USED FOR UNKNOWN INDICATION
     Route: 065
  6. PREDNISONE. [Concomitant]
     Active Substance: PREDNISONE
     Indication: PRODUCT USED FOR UNKNOWN INDICATION
  7. DEMEROL [Suspect]
     Active Substance: MEPERIDINE HYDROCHLORIDE
     Indication: PRODUCT USED FOR UNKNOWN INDICATION
     Route: 065
  8. DICLOFENAC SODIUM. [Suspect]
     Active Substance: DICLOFENAC SODIUM
     Indication: PRODUCT USED FOR UNKNOWN INDICATION
     Dosage: UNK
     Route: 065
  9. ACETYLSALICYLIC ACID [Suspect]
     Active Substance: ASPIRIN
     Indication: PRODUCT USED FOR UNKNOWN INDICATION
     Route: 065
  10. BACTRIM [Suspect]
     Active Substance: SULFAMETHOXAZOLE\TRIMETHOPRIM
     Indication: PRODUCT USED FOR UNKNOWN INDICATION
  11. SPIRIVA [Concomitant]
     Active Substance: TIOTROPIUM BROMIDE MONOHYDRATE
     Indication: PRODUCT USED FOR UNKNOWN INDICATION
  12. ZENHALE [Concomitant]
     Active Substance: FORMOTEROL FUMARATE\MOMETASONE FUROATE
     Indication: PRODUCT USED FOR UNKNOWN INDICATION
     Route: 065
  13. VENTOLIN [Concomitant]
     Active Substance: ALBUTEROL SULFATE
     Indication: PRODUCT USED FOR UNKNOWN INDICATION

REACTIONS (18)
  - Depression [Not Recovered/Not Resolved]
  - Hypertension [Not Recovered/Not Resolved]
  - Anxiety [Not Recovered/Not Resolved]
  - Rhinorrhoea [Not Recovered/Not Resolved]
  - Mycotic allergy [Not Recovered/Not Resolved]
  - Seasonal allergy [Not Recovered/Not Resolved]
  - Neutrophil count increased [Not Recovered/Not Resolved]
  - Type 2 diabetes mellitus [Not Recovered/Not Resolved]
  - Bipolar disorder [Not Recovered/Not Resolved]
  - Cerebrovascular accident [Not Recovered/Not Resolved]
  - White blood cell count increased [Not Recovered/Not Resolved]
  - Allergy to animal [Not Recovered/Not Resolved]
  - Nasal congestion [Not Recovered/Not Resolved]
  - Obstructive airways disorder [Not Recovered/Not Resolved]
  - Forced expiratory volume decreased [Not Recovered/Not Resolved]
  - Mite allergy [Not Recovered/Not Resolved]
  - Cough [Not Recovered/Not Resolved]
  - Transient ischaemic attack [Not Recovered/Not Resolved]
